FAERS Safety Report 9350550 (Version 2)
Quarter: 2013Q3

REPORT INFORMATION
  Report Type: Spontaneous
  Country: US (occurrence: US)
  Receive Date: 20130617
  Receipt Date: 20130715
  Transmission Date: 20140515
  Serious: Yes (Disabling, Other)
  Sender: FDA-Public Use
  Company Number: US-PFIZER INC-2013181115

PATIENT
  Age: 61 Year
  Sex: Female
  Weight: 57.14 kg

DRUGS (2)
  1. EFFEXOR XR [Suspect]
     Indication: EMOTIONAL DISTRESS
     Dosage: 37.5 MG, 1X/DAY
     Route: 048
     Dates: start: 2004
  2. EFFEXOR XR [Suspect]
     Indication: DEPRESSION
     Dosage: 75 MG, 1X/DAY
     Route: 048

REACTIONS (1)
  - Rheumatoid arthritis [Not Recovered/Not Resolved]
